FAERS Safety Report 24676551 (Version 2)
Quarter: 2025Q2

REPORT INFORMATION
  Report Type: Spontaneous
  Country: CA (occurrence: CA)
  Receive Date: 20241128
  Receipt Date: 20250617
  Transmission Date: 20250717
  Serious: Yes (Hospitalization)
  Sender: MYLAN
  Company Number: CA-MYLANLABS-2024M1107008

PATIENT
  Age: 85 Year
  Sex: Female

DRUGS (40)
  1. REVATIO [Suspect]
     Active Substance: SILDENAFIL CITRATE
     Indication: Pulmonary arterial hypertension
     Dosage: 20 MILLIGRAM, TID (THREE TIMES A DAY)
     Dates: start: 20150408
  2. REVATIO [Suspect]
     Active Substance: SILDENAFIL CITRATE
     Dosage: 20 MILLIGRAM, TID (THREE TIMES A DAY)
     Route: 048
     Dates: start: 20150408
  3. REVATIO [Suspect]
     Active Substance: SILDENAFIL CITRATE
     Dosage: 20 MILLIGRAM, TID (THREE TIMES A DAY)
     Route: 048
     Dates: start: 20150408
  4. REVATIO [Suspect]
     Active Substance: SILDENAFIL CITRATE
     Dosage: 20 MILLIGRAM, TID (THREE TIMES A DAY)
     Dates: start: 20150408
  5. UPTRAVI [Concomitant]
     Active Substance: SELEXIPAG
  6. UPTRAVI [Concomitant]
     Active Substance: SELEXIPAG
     Route: 065
  7. UPTRAVI [Concomitant]
     Active Substance: SELEXIPAG
     Route: 065
  8. UPTRAVI [Concomitant]
     Active Substance: SELEXIPAG
  9. AMBRISENTAN [Concomitant]
     Active Substance: AMBRISENTAN
  10. AMBRISENTAN [Concomitant]
     Active Substance: AMBRISENTAN
     Route: 065
  11. AMBRISENTAN [Concomitant]
     Active Substance: AMBRISENTAN
     Route: 065
  12. AMBRISENTAN [Concomitant]
     Active Substance: AMBRISENTAN
  13. COUMADIN [Concomitant]
     Active Substance: WARFARIN SODIUM
  14. COUMADIN [Concomitant]
     Active Substance: WARFARIN SODIUM
     Route: 065
  15. COUMADIN [Concomitant]
     Active Substance: WARFARIN SODIUM
     Route: 065
  16. COUMADIN [Concomitant]
     Active Substance: WARFARIN SODIUM
  17. RISEDRONATE SODIUM [Concomitant]
     Active Substance: RISEDRONATE SODIUM
  18. RISEDRONATE SODIUM [Concomitant]
     Active Substance: RISEDRONATE SODIUM
     Route: 065
  19. RISEDRONATE SODIUM [Concomitant]
     Active Substance: RISEDRONATE SODIUM
     Route: 065
  20. RISEDRONATE SODIUM [Concomitant]
     Active Substance: RISEDRONATE SODIUM
  21. FUROSEMIDE [Concomitant]
     Active Substance: FUROSEMIDE
  22. FUROSEMIDE [Concomitant]
     Active Substance: FUROSEMIDE
     Route: 065
  23. FUROSEMIDE [Concomitant]
     Active Substance: FUROSEMIDE
     Route: 065
  24. FUROSEMIDE [Concomitant]
     Active Substance: FUROSEMIDE
  25. AMLODIPINE [Concomitant]
     Active Substance: AMLODIPINE BESYLATE
  26. AMLODIPINE [Concomitant]
     Active Substance: AMLODIPINE BESYLATE
     Route: 065
  27. AMLODIPINE [Concomitant]
     Active Substance: AMLODIPINE BESYLATE
     Route: 065
  28. AMLODIPINE [Concomitant]
     Active Substance: AMLODIPINE BESYLATE
  29. MICARDIS [Concomitant]
     Active Substance: TELMISARTAN
  30. MICARDIS [Concomitant]
     Active Substance: TELMISARTAN
     Route: 065
  31. MICARDIS [Concomitant]
     Active Substance: TELMISARTAN
     Route: 065
  32. MICARDIS [Concomitant]
     Active Substance: TELMISARTAN
  33. DIGOXIN [Concomitant]
     Active Substance: DIGOXIN
  34. DIGOXIN [Concomitant]
     Active Substance: DIGOXIN
     Route: 065
  35. DIGOXIN [Concomitant]
     Active Substance: DIGOXIN
     Route: 065
  36. DIGOXIN [Concomitant]
     Active Substance: DIGOXIN
  37. CALCIUM [Concomitant]
     Active Substance: CALCIUM
  38. CALCIUM [Concomitant]
     Active Substance: CALCIUM
     Route: 065
  39. CALCIUM [Concomitant]
     Active Substance: CALCIUM
     Route: 065
  40. CALCIUM [Concomitant]
     Active Substance: CALCIUM

REACTIONS (2)
  - Fall [Unknown]
  - Amnesia [Unknown]

NARRATIVE: CASE EVENT DATE: 20250401
